FAERS Safety Report 21950552 (Version 1)
Quarter: 2023Q1

REPORT INFORMATION
  Report Type: Spontaneous
  Country: US (occurrence: None)
  Receive Date: 20230203
  Receipt Date: 20230203
  Transmission Date: 20230418
  Serious: No
  Sender: FDA-Public Use
  Company Number: None

PATIENT
  Age: 57 Year
  Sex: Female

DRUGS (1)
  1. ESTRACE [Suspect]
     Active Substance: ESTRADIOL
     Indication: Hormone replacement therapy

REACTIONS (2)
  - Vulvovaginal discomfort [None]
  - Genital hyperaesthesia [None]

NARRATIVE: CASE EVENT DATE: 20230202
